FAERS Safety Report 24250708 (Version 1)
Quarter: 2024Q3

REPORT INFORMATION
  Report Type: Spontaneous
  Country: US (occurrence: US)
  Receive Date: 20240826
  Receipt Date: 20240826
  Transmission Date: 20241016
  Serious: Yes (Other)
  Sender: MEDEXUS PHARMA
  Company Number: US-MEDEXUS PHARMA, INC.-2023MED00510

PATIENT
  Sex: Female

DRUGS (3)
  1. RASUVO [Suspect]
     Active Substance: METHOTREXATE SODIUM
     Indication: Rheumatoid arthritis
     Dosage: 15 MG, INJECTED IN THIGH, 1X/WEEK ON THURSDAYS
     Route: 065
     Dates: start: 2017, end: 2023
  2. RASUVO [Suspect]
     Active Substance: METHOTREXATE SODIUM
     Indication: Systemic lupus erythematosus
     Dosage: UNK INJECTED IN THIGH, 1X/WEEK ON THURSDAYS
     Route: 065
     Dates: start: 20231126
  3. UNSPECIFIED MEDICATION FOR LUPUS [Concomitant]

REACTIONS (8)
  - Pneumonia fungal [Recovering/Resolving]
  - Device defective [Unknown]
  - Device mechanical issue [Unknown]
  - Device malfunction [Unknown]
  - Device delivery system issue [Unknown]
  - Exposure via skin contact [Unknown]
  - Product dose omission issue [Unknown]
  - Device leakage [Unknown]

NARRATIVE: CASE EVENT DATE: 20230101
